FAERS Safety Report 4805413-1 (Version None)
Quarter: 2005Q4

REPORT INFORMATION
  Report Type: 
  Country: None (occurrence: None)
  Receive Date: 20051017
  Receipt Date: 20051007
  Transmission Date: 20060501
  Serious: Yes (Hospitalization, Other)
  Sender: FDA-Public Use
  Company Number: KII-2005-0018941

PATIENT
  Age: 29 Year
  Sex: Male

DRUGS (2)
  1. OXYCONTIN [Suspect]
     Indication: INTENTIONAL DRUG MISUSE
     Dosage: INTRAVENOUS
     Route: 042
  2. METHAMPHETAMINE HCL [Suspect]
     Indication: INTENTIONAL DRUG MISUSE
     Dosage: NASAL
     Route: 045

REACTIONS (15)
  - ACIDOSIS [None]
  - ASPIRATION [None]
  - BODY TEMPERATURE INCREASED [None]
  - BRADYCARDIA [None]
  - ELECTROCARDIOGRAM QT CORRECTED INTERVAL PROLONGED [None]
  - HYPOTHERMIA [None]
  - LEUKOCYTOSIS [None]
  - LOSS OF CONSCIOUSNESS [None]
  - MYDRIASIS [None]
  - PAIN [None]
  - POLYSUBSTANCE ABUSE [None]
  - RHONCHI [None]
  - SUPRAVENTRICULAR EXTRASYSTOLES [None]
  - TREMOR [None]
  - VENTRICULAR EXTRASYSTOLES [None]
